FAERS Safety Report 4515479-4 (Version None)
Quarter: 2004Q4

REPORT INFORMATION
  Report Type: 
  Country: None (occurrence: None)
  Receive Date: 20041126
  Receipt Date: 20041116
  Transmission Date: 20050328
  Serious: Yes (Hospitalization)
  Sender: FDA-Public Use
  Company Number: 2004-04908

PATIENT
  Age: 33 Year
  Sex: Female

DRUGS (2)
  1. NOR-QD (WATSON LABORATORIES) (NORENTHINDRONE) TABLET, 0.35 MG [Suspect]
     Indication: ORAL CONTRACEPTION
     Dosage: 1 TABLET, DAILY, ORAL
     Route: 048
     Dates: start: 20040401, end: 20040908
  2. ADVIL [Concomitant]

REACTIONS (5)
  - ANGINA PECTORIS [None]
  - CARDIAC MURMUR [None]
  - ISCHAEMIC STROKE [None]
  - MIGRAINE [None]
  - SINUS TACHYCARDIA [None]
